FAERS Safety Report 4360622-3 (Version None)
Quarter: 2004Q2

REPORT INFORMATION
  Report Type: 
  Country: None (occurrence: None)
  Receive Date: 20040519
  Receipt Date: 20040126
  Transmission Date: 20050107
  Serious: Yes (Hospitalization, Disabling)
  Sender: FDA-Public Use
  Company Number: US-MERCK-0401USA01968

PATIENT
  Age: 43 Year
  Sex: Male
  Weight: 100 kg

DRUGS (6)
  1. AMITRIPTYLINE HYDROCHLORIDE [Concomitant]
     Route: 065
     Dates: start: 20020102
  2. ASPIRIN [Concomitant]
     Route: 065
  3. PRAVACHOL [Concomitant]
     Route: 065
     Dates: start: 20020101
  4. ALTACE [Concomitant]
     Route: 065
     Dates: start: 20020101, end: 20020101
  5. VIOXX [Suspect]
     Indication: HEADACHE
     Route: 048
     Dates: start: 20011101, end: 20020101
  6. VIOXX [Suspect]
     Route: 048
     Dates: start: 20020101

REACTIONS (13)
  - ACUTE MYOCARDIAL INFARCTION [None]
  - CORONARY ARTERY DISEASE [None]
  - CORONARY ARTERY STENOSIS [None]
  - DIZZINESS [None]
  - DRUG DEPENDENCE [None]
  - EMOTIONAL DISTRESS [None]
  - FATIGUE [None]
  - GASTROOESOPHAGEAL REFLUX DISEASE [None]
  - HEADACHE [None]
  - HYPERCHOLESTEROLAEMIA [None]
  - HYPERTENSION [None]
  - THERAPEUTIC RESPONSE DECREASED [None]
  - UPPER RESPIRATORY TRACT INFECTION [None]
